FAERS Safety Report 9941294 (Version 1)
Quarter: 2014Q1

REPORT INFORMATION
  Report Type: Report from Study
  Country: US (occurrence: US)
  Receive Date: 20140303
  Receipt Date: 20140303
  Transmission Date: 20141002
  Serious: No
  Sender: FDA-Public Use
  Company Number: US-ABBVIE-13P-163-1043260-00

PATIENT
  Age: 63 Year
  Sex: Male
  Weight: 105.33 kg

DRUGS (2)
  1. HUMIRA [Suspect]
     Indication: CROHN^S DISEASE
     Dates: start: 20121121
  2. ASACOL [Concomitant]
     Indication: CROHN^S DISEASE

REACTIONS (2)
  - Sinusitis [Recovered/Resolved]
  - Respiratory tract congestion [Recovered/Resolved]
